FAERS Safety Report 9623243 (Version 2)
Quarter: 2013Q4

REPORT INFORMATION
  Report Type: Spontaneous
  Country: US (occurrence: None)
  Receive Date: 20131010
  Receipt Date: 20131104
  Transmission Date: 20140711
  Serious: Yes (Hospitalization)
  Sender: FDA-Public Use
  Company Number: DSU-2013-04750

PATIENT
  Age: 81 Year
  Sex: Female
  Weight: 64.41 kg

DRUGS (5)
  1. BENICAR [Suspect]
     Indication: HYPERTENSION
     Dosage: PM
     Route: 048
     Dates: start: 2013
  2. BENICAR HCT [Suspect]
     Indication: HYPERTENSION
     Route: 048
     Dates: start: 2013
  3. METOPROLOL (METOPROLOL) [Concomitant]
  4. AMLODIPINE (AMLODIPINE) [Concomitant]
  5. CLOPIDOGREL (CLOPIDOGREL) [Concomitant]

REACTIONS (3)
  - Pain [None]
  - Movement disorder [None]
  - Groin pain [None]
